FAERS Safety Report 15598672 (Version 2)
Quarter: 2018Q4

REPORT INFORMATION
  Report Type: Spontaneous
  Country: DE (occurrence: DE)
  Receive Date: 20181108
  Receipt Date: 20181217
  Transmission Date: 20190205
  Serious: Yes (Hospitalization)
  Sender: FDA-Public Use
  Company Number: PHHY2018DE148081

PATIENT

DRUGS (2)
  1. RAMIPRIL. [Concomitant]
     Active Substance: RAMIPRIL
     Indication: PRODUCT USED FOR UNKNOWN INDICATION
     Dosage: UNK
     Route: 065
  2. ENTRESTO [Suspect]
     Active Substance: SACUBITRIL\VALSARTAN
     Indication: PRODUCT USED FOR UNKNOWN INDICATION
     Dosage: 50 MG, UNK
     Route: 065

REACTIONS (8)
  - Icterus index increased [Unknown]
  - Blood cholinesterase decreased [Unknown]
  - Bilirubin conjugated increased [Unknown]
  - Blood bilirubin abnormal [Unknown]
  - Gamma-glutamyltransferase increased [Unknown]
  - Hepatitis [Unknown]
  - Contraindicated product administered [Unknown]
  - N-terminal prohormone brain natriuretic peptide increased [Unknown]
